FAERS Safety Report 8943412 (Version 1)
Quarter: 2012Q4

REPORT INFORMATION
  Report Type: 
  Country: US (occurrence: US)
  Receive Date: 20121203
  Receipt Date: 20121203
  Transmission Date: 20130627
  Serious: Yes (Hospitalization, Disabling)
  Sender: FDA-Public Use
  Company Number: US-009507513-1103USA01785

PATIENT
  Age: 86 Year
  Sex: Male
  Weight: 81.1 kg

DRUGS (15)
  1. DECADRON TABLETS [Suspect]
     Indication: MULTIPLE MYELOMA
     Dosage: 40 mg, UNK
     Route: 048
     Dates: start: 20101119
  2. VELCADE [Suspect]
     Indication: MULTIPLE MYELOMA
     Dosage: 1.6 mg/m2, UNK
     Route: 042
     Dates: start: 20101119
  3. TENORMIN [Concomitant]
     Dosage: 25 mg, qd
  4. FRAGMIN [Concomitant]
     Dosage: 12500 IU, qd
  5. LOMOTIL [Concomitant]
     Indication: DIARRHOEA
     Dosage: 2.5/0.025
  6. MK-0152 [Concomitant]
     Dosage: 12.5 mg, qd
  7. ACETAMINOPHEN (+) HYDROCODONE BITARTRATE [Concomitant]
     Indication: PAIN
     Dosage: 5/500
  8. LACTULOSE [Concomitant]
     Dosage: 10gm/15ml
  9. MAGNESIUM CITRATE [Concomitant]
     Indication: CONSTIPATION
  10. PRILOSEC [Concomitant]
     Dosage: 40 mg, qd
  11. ZOFRAN [Concomitant]
     Indication: NAUSEA
     Dosage: 8 mg, PRN
  12. ZOFRAN [Concomitant]
     Indication: VOMITING
  13. MIRALAX [Concomitant]
     Dosage: UNK UNK, qd
  14. PRIMIDONE [Concomitant]
     Dosage: 50 mg, bid
  15. ZOCOR [Concomitant]
     Dosage: 15 mg, hs

REACTIONS (9)
  - Intervertebral disc degeneration [Not Recovered/Not Resolved]
  - Arthralgia [Not Recovered/Not Resolved]
  - Fall [Unknown]
  - Spinal column stenosis [Not Recovered/Not Resolved]
  - Lumbar radiculopathy [Not Recovered/Not Resolved]
  - Hypoaesthesia [Unknown]
  - Muscle atrophy [Unknown]
  - Dyspepsia [Unknown]
  - Osteoarthritis [Unknown]
